FAERS Safety Report 16698127 (Version 1)
Quarter: 2019Q3

REPORT INFORMATION
  Report Type: Spontaneous
  Country: ES (occurrence: ES)
  Receive Date: 20190813
  Receipt Date: 20190813
  Transmission Date: 20191004
  Serious: Yes (Other)
  Sender: FDA-Public Use
  Company Number: ES-AMAG PHARMACEUTICALS, INC.-AMAG201904068

PATIENT
  Age: 40 Year
  Sex: Female
  Weight: 75.9 kg

DRUGS (1)
  1. MAKENA [Suspect]
     Active Substance: HYDROXYPROGESTERONE CAPROATE
     Indication: PREMATURE DELIVERY
     Dosage: HYDROXYPROGESTERONE CAPROATE INJECTION, 250MG/ML (17P), WEEKLY 1 ML INTRAMUSCULAR INJECTIONS UNTIL 3
     Route: 030
     Dates: start: 20141218, end: 20150430

REACTIONS (1)
  - Angiolipoma [Recovered/Resolved]

NARRATIVE: CASE EVENT DATE: 20190301
